FAERS Safety Report 20885153 (Version 1)
Quarter: 2022Q2

REPORT INFORMATION
  Report Type: Spontaneous
  Country: US (occurrence: None)
  Receive Date: 20220527
  Receipt Date: 20220527
  Transmission Date: 20220721
  Serious: Yes (unspecified)
  Sender: FDA-Public Use
  Company Number: None

PATIENT
  Age: 79 Year
  Sex: Female
  Weight: 57.1 kg

DRUGS (3)
  1. DOXORUBICIN [Suspect]
     Active Substance: DOXORUBICIN
     Indication: Breast cancer
     Dosage: OTHER FREQUENCY : EVERY 28 DAYS;?
     Route: 042
     Dates: start: 20220525
  2. DEXAMETHASONE [Concomitant]
     Active Substance: DEXAMETHASONE
     Dates: start: 20220525
  3. DENOSUMAB [Concomitant]
     Active Substance: DENOSUMAB
     Dates: start: 20151016

REACTIONS (4)
  - Flushing [None]
  - Throat tightness [None]
  - Infusion related reaction [None]
  - Therapy change [None]

NARRATIVE: CASE EVENT DATE: 20220525
